FAERS Safety Report 6135423-6 (Version None)
Quarter: 2009Q1

REPORT INFORMATION
  Report Type: 
  Country: None (occurrence: None)
  Receive Date: 20090327
  Receipt Date: 20090318
  Transmission Date: 20090719
  Serious: Yes (Hospitalization)
  Sender: FDA-Public Use
  Company Number: PT-ELI_LILLY_AND_COMPANY-PT200903000922

PATIENT
  Age: 50 Year
  Sex: Female

DRUGS (1)
  1. CYMBALTA [Suspect]
     Indication: DEPRESSION
     Dosage: UNK UNK,
     Route: 065
     Dates: start: 20081101, end: 20081101

REACTIONS (5)
  - HYPOGLYCAEMIA [None]
  - HYPOTENSION [None]
  - SHOCK [None]
  - SYNCOPE [None]
  - VOMITING [None]
